FAERS Safety Report 7490439-2 (Version None)
Quarter: 2011Q2

REPORT INFORMATION
  Report Type: 
  Country: None (occurrence: None)
  Receive Date: 20110519
  Receipt Date: 20110223
  Transmission Date: 20111010
  Serious: No
  Sender: FDA-Public Use
  Company Number: US-PFIZER INC-2011102925

PATIENT
  Sex: Male

DRUGS (3)
  1. ADVIL CONGESTION RELIEF [Suspect]
     Indication: NASOPHARYNGITIS
     Dosage: UNKNOWN
  2. ADVIL CONGESTION RELIEF [Suspect]
     Indication: NASAL CONGESTION
  3. ADVIL CONGESTION RELIEF [Suspect]
     Indication: SINUS HEADACHE

REACTIONS (1)
  - DRUG INEFFECTIVE [None]
